FAERS Safety Report 9169869 (Version 1)
Quarter: 2013Q1

REPORT INFORMATION
  Report Type: Spontaneous
  Country: CN (occurrence: CN)
  Receive Date: 20130319
  Receipt Date: 20130319
  Transmission Date: 20140127
  Serious: Yes (Other)
  Sender: FDA-Public Use
  Company Number: CN-009507513-2011SP023204

PATIENT
  Age: 47 Year
  Sex: Male

DRUGS (4)
  1. TEMODAL [Suspect]
     Indication: GLIOBLASTOMA
     Dosage: 120 MG, QD
     Route: 048
     Dates: start: 20110226, end: 20110409
  2. TEMODAL [Suspect]
     Dosage: 280 MG, QD
     Route: 048
     Dates: start: 201104
  3. TEMODAL [Suspect]
     Dosage: 360 MG, QD
     Route: 048
     Dates: start: 2011
  4. TEMODAL [Suspect]
     Dosage: 280 MG, QD
     Dates: start: 201212

REACTIONS (8)
  - Muscular weakness [Not Recovered/Not Resolved]
  - Arthralgia [Not Recovered/Not Resolved]
  - Bone pain [Not Recovered/Not Resolved]
  - Back pain [Not Recovered/Not Resolved]
  - Muscular weakness [Recovered/Resolved]
  - Myalgia [Not Recovered/Not Resolved]
  - Arthralgia [Recovered/Resolved]
  - Insomnia [Recovered/Resolved]
